FAERS Safety Report 6863499-7 (Version None)
Quarter: 2010Q3

REPORT INFORMATION
  Report Type: 
  Country: None (occurrence: None)
  Receive Date: 20100721
  Receipt Date: 20100709
  Transmission Date: 20110219
  Serious: Yes (Life-Threatening, Hospitalization)
  Sender: FDA-Public Use
  Company Number: GB-PFIZER INC-2010072013

PATIENT
  Age: 60 Year
  Sex: Female
  Weight: 63.5 kg

DRUGS (6)
  1. CHAMPIX [Suspect]
     Indication: SMOKING CESSATION THERAPY
     Dosage: 0.5 MG, UNK
     Route: 048
     Dates: start: 20100128, end: 20100130
  2. ACETYLSALICYLIC ACID [Concomitant]
  3. ATORVASTATIN [Concomitant]
  4. RAMIPRIL [Concomitant]
  5. LEVOTHYROXINE SODIUM [Concomitant]
  6. ALCOHOL [Concomitant]

REACTIONS (3)
  - MALAISE [None]
  - MYOCARDIAL INFARCTION [None]
  - PALLOR [None]
